FAERS Safety Report 8434068-2 (Version None)
Quarter: 2012Q2

REPORT INFORMATION
  Report Type: 
  Country: None (occurrence: None)
  Receive Date: 20120323
  Receipt Date: 20110304
  Transmission Date: 20120825
  Serious: Yes (Hospitalization)
  Sender: FDA-Public Use
  Company Number: 163-21880-11021663

PATIENT
  Age: 51 Year
  Sex: Male

DRUGS (5)
  1. NEXIUM [Concomitant]
  2. BISMUTH SUBSALICYLATE [Concomitant]
  3. FOSINOPRIL SODIUM [Concomitant]
  4. REVLIMID [Suspect]
     Indication: CHRONIC LYMPHOCYTIC LEUKAEMIA
     Dosage: 10 MG, DAILY FOR 21 DAYS, PO
     Route: 048
     Dates: start: 20110214, end: 20110216
  5. PREDNISONE TAB [Concomitant]

REACTIONS (15)
  - PYREXIA [None]
  - TACHYCARDIA [None]
  - NIGHT SWEATS [None]
  - CONSTIPATION [None]
  - DYSPHONIA [None]
  - PLATELET COUNT DECREASED [None]
  - HEADACHE [None]
  - NECK PAIN [None]
  - RASH [None]
  - BLOOD PRESSURE DECREASED [None]
  - ABDOMINAL PAIN [None]
  - BACK PAIN [None]
  - DECREASED APPETITE [None]
  - DEHYDRATION [None]
  - EPISTAXIS [None]
